FAERS Safety Report 10050620 (Version 2)
Quarter: 2014Q2

REPORT INFORMATION
  Report Type: Spontaneous
  Country: US (occurrence: US)
  Receive Date: 20140401
  Receipt Date: 20140401
  Transmission Date: 20141212
  Serious: No
  Sender: FDA-Public Use
  Company Number: US-ASTRAZENECA-2013SE60444

PATIENT
  Age: 54 Year
  Sex: Female
  Weight: 77.1 kg

DRUGS (10)
  1. NEXIUM [Suspect]
     Indication: GASTROOESOPHAGEAL REFLUX DISEASE
     Route: 048
     Dates: end: 201308
  2. NEXIUM [Suspect]
     Indication: GASTRIC PH DECREASED
     Route: 048
     Dates: end: 201308
  3. FLUOXETINE [Concomitant]
  4. SKELAXIN [Concomitant]
  5. TRICOR [Concomitant]
  6. AMOUR THYROID [Concomitant]
  7. METFORMIN [Concomitant]
  8. LEVSIN [Concomitant]
  9. CHLORDIAZEPOXIDE [Concomitant]
  10. DICYCLOMINE [Concomitant]

REACTIONS (2)
  - Blood gastrin increased [Recovering/Resolving]
  - Intentional product misuse [Recovered/Resolved]
